FAERS Safety Report 20465764 (Version 2)
Quarter: 2022Q1

REPORT INFORMATION
  Report Type: Report from Study
  Country: FR (occurrence: FR)
  Receive Date: 20220212
  Receipt Date: 20220311
  Transmission Date: 20220424
  Serious: Yes (Death, Life-Threatening, Other)
  Sender: FDA-Public Use
  Company Number: None

PATIENT
  Age: 61 Year
  Sex: Male
  Weight: 98 kg

DRUGS (15)
  1. METHOTREXATE [Suspect]
     Active Substance: METHOTREXATE
     Indication: Product used for unknown indication
     Dosage: 15 MG, QW,THERAPY END DATE: ASKU
     Route: 058
     Dates: start: 20150309
  2. STELARA [Suspect]
     Active Substance: USTEKINUMAB
     Indication: Psoriasis
     Dosage: 90 MG, Q3MO,THERAPY END DATE: ASKU
     Route: 058
     Dates: start: 20170620
  3. STELARA [Suspect]
     Active Substance: USTEKINUMAB
     Indication: Psoriasis
     Dosage: 45 MG, 4W (FROM 19 MAY 2017)180 MG, THERAPY END DATE: ASKU
     Route: 058
     Dates: start: 20170519
  4. REMICADE [Suspect]
     Active Substance: INFLIXIMAB
     Indication: Psoriasis
     Dosage: 500 MG, BIW (ONE DF EVERY 2 WEEKS,
     Route: 042
     Dates: start: 20160512, end: 20170519
  5. REMICADE [Suspect]
     Active Substance: INFLIXIMAB
     Indication: Psoriasis
     Dosage: 490 MG, THERAPY END DATE: ASKU
     Route: 042
     Dates: start: 20151027
  6. FOLIC ACID [Suspect]
     Active Substance: FOLIC ACID
     Indication: Product used for unknown indication
     Dosage: 5 MG, QW,THERAPY END DATE: ASKU
     Route: 065
     Dates: start: 20150309
  7. COSENTYX [Suspect]
     Active Substance: SECUKINUMAB
     Indication: Psoriasis
     Dosage: 300 MG, QW (FROM 24 NOV 2017),THERAPY END DATE: ASKU
     Route: 058
     Dates: start: 20171124
  8. CELEBREX [Concomitant]
     Active Substance: CELECOXIB
     Indication: Product used for unknown indication
     Dosage: UNK
     Route: 065
     Dates: start: 20170519
  9. CLOBETASOL PROPIONATE [Concomitant]
     Active Substance: CLOBETASOL PROPIONATE
     Indication: Product used for unknown indication
     Dosage: UNK
     Route: 065
     Dates: start: 20160512
  10. DEXERYL [Concomitant]
     Indication: Product used for unknown indication
     Dosage: UNK,DEXERYL [GLYCEROL;PARAFFIN, LIQUID;WHITE SOFT PARAFFIN]
     Route: 065
     Dates: start: 20150513
  11. CELECOXIB [Concomitant]
     Active Substance: CELECOXIB
     Indication: Product used for unknown indication
     Route: 065
  12. CLOBETASOL PROPIONATE [Concomitant]
     Active Substance: CLOBETASOL PROPIONATE
     Indication: Product used for unknown indication
     Dosage: UNK
     Route: 065
     Dates: start: 20150727
  13. ESOMEPRAZOLE [Concomitant]
     Active Substance: ESOMEPRAZOLE
     Indication: Product used for unknown indication
     Dosage: UNK
     Route: 065
     Dates: start: 20170825
  14. ESOMEPRAZOLE [Concomitant]
     Active Substance: ESOMEPRAZOLE
     Indication: Product used for unknown indication
     Dosage: UNK
     Route: 065
     Dates: start: 201510
  15. DERMOVAL [Concomitant]
     Dates: start: 20160512

REACTIONS (7)
  - Sudden death [Fatal]
  - Off label use [Fatal]
  - Tooth abscess [Fatal]
  - Product use issue [Fatal]
  - Overdose [Fatal]
  - Inappropriate schedule of product administration [Fatal]
  - Product use issue [Fatal]

NARRATIVE: CASE EVENT DATE: 20150309
